FAERS Safety Report 19856708 (Version 1)
Quarter: 2021Q3

REPORT INFORMATION
  Report Type: Spontaneous
  Country: IN (occurrence: IN)
  Receive Date: 20210920
  Receipt Date: 20210920
  Transmission Date: 20211014
  Serious: Yes (Other)
  Sender: FDA-Public Use
  Company Number: IN-LUPIN PHARMACEUTICALS INC.-2021-17778

PATIENT
  Age: 28 Year
  Sex: Female

DRUGS (2)
  1. CINACALCET. [Suspect]
     Active Substance: CINACALCET
     Indication: HYPERCALCAEMIA
     Dosage: 15 MILLIGRAM, QD
     Route: 065
  2. CINACALCET. [Suspect]
     Active Substance: CINACALCET
     Dosage: 30 MILLIGRAM, QD (THE DOSE WAS UP TITRATED AT 2 WEEKS INTERVAL WITH THE TARGET TO MAINTAIN SERUM CAL
     Route: 065

REACTIONS (5)
  - Premature delivery [Unknown]
  - Vomiting [Unknown]
  - Exposure during pregnancy [Unknown]
  - Nausea [Unknown]
  - Decreased appetite [Unknown]
